FAERS Safety Report 5044820-1 (Version None)
Quarter: 2006Q3

REPORT INFORMATION
  Report Type: 
  Country: None (occurrence: None)
  Receive Date: 20060705
  Receipt Date: 20060619
  Transmission Date: 20061208
  Serious: No
  Sender: FDA-Public Use
  Company Number: 2676

PATIENT
  Age: 21 Year
  Sex: Male

DRUGS (1)
  1. AMNESTEEM [Suspect]
     Indication: ACNE
     Dosage: 40 MG BID PO
     Route: 048
     Dates: start: 20060213, end: 20060329

REACTIONS (1)
  - LIPOMA [None]
